FAERS Safety Report 11614252 (Version 1)
Quarter: 2015Q4

REPORT INFORMATION
  Report Type: Spontaneous
  Country: US (occurrence: US)
  Receive Date: 20151008
  Receipt Date: 20151008
  Transmission Date: 20160304
  Serious: No
  Sender: FDA-Public Use
  Company Number: US-ASTRAZENECA-2015SE94131

PATIENT
  Sex: Male

DRUGS (10)
  1. HYDROXYZINE HYDROCHLORIDE. [Concomitant]
     Active Substance: HYDROXYZINE HYDROCHLORIDE
     Route: 065
  2. LISINOPRIL. [Concomitant]
     Active Substance: LISINOPRIL
     Route: 065
  3. METOPROLOL [Concomitant]
     Active Substance: METOPROLOL
     Route: 065
  4. PRETIQ [Concomitant]
     Route: 065
  5. MOVANTIK [Suspect]
     Active Substance: NALOXEGOL OXALATE
     Route: 048
  6. HYDROCODONE [Concomitant]
     Active Substance: HYDROCODONE
     Dosage: EVERY SIX HOURS
     Route: 065
  7. CLONAZEPAM. [Concomitant]
     Active Substance: CLONAZEPAM
     Route: 065
  8. CYCLOBENZAPRINE [Concomitant]
     Active Substance: CYCLOBENZAPRINE
     Route: 065
  9. TRAZODONE [Concomitant]
     Active Substance: TRAZODONE HYDROCHLORIDE
     Route: 065
  10. MS CONTIN [Concomitant]
     Active Substance: MORPHINE SULFATE
     Route: 048

REACTIONS (7)
  - Asthenia [Recovered/Resolved]
  - Pain [Recovered/Resolved]
  - Pharyngeal hypoaesthesia [Recovered/Resolved]
  - Vomiting [Recovered/Resolved]
  - Chills [Recovered/Resolved]
  - Glomerular filtration rate abnormal [Unknown]
  - Hyperhidrosis [Recovered/Resolved]
